FAERS Safety Report 9546918 (Version 1)
Quarter: 2013Q2

REPORT INFORMATION
  Report Type: Spontaneous
  Country: US (occurrence: None)
  Receive Date: 20130606
  Receipt Date: 20130606
  Transmission Date: 20140414
  Serious: No
  Sender: FDA-Public Use
  Company Number: 163-POMAL-10342604

PATIENT
  Age: 53 Year
  Sex: Male
  Weight: 86.18 kg

DRUGS (12)
  1. POMALYST [Suspect]
     Indication: PLASMA CELL MYELOMA
     Route: 048
     Dates: start: 201303
  2. DEXAMETHASONE (DEXAMETHASONE) (UNKNOWN) [Suspect]
     Indication: PRODUCT USED FOR UNKNOWN INDICATION
  3. VELCADE [Suspect]
     Indication: PRODUCT USED FOR UNKNOWN INDICATION
  4. PROBIOTIC (BIFIDOBACTERIUM LACTIS) [Concomitant]
  5. VITAMIN D3 (COLECALICIFEROL) [Concomitant]
  6. ACYCLOVIR (ACICLOVIR) [Concomitant]
  7. ASPIRIN (ACETYLSALICYLIC ACID) [Concomitant]
  8. PANTOPRAZOLE (PANTOPRAZOLE) [Concomitant]
  9. ATENOLOL (ATENOLOL) [Concomitant]
  10. CENTRUM SILVER (CENTRUM SILVER) [Concomitant]
  11. FLUCONAZOLE (FLUCONAZOLE) [Concomitant]
  12. DAPSONE (DAPSONE) [Concomitant]

REACTIONS (3)
  - Hyperventilation [None]
  - Dizziness [None]
  - Dyspnoea [None]
